FAERS Safety Report 18412233 (Version 2)
Quarter: 2021Q2

REPORT INFORMATION
  Report Type: Spontaneous
  Country: US (occurrence: US)
  Receive Date: 20201022
  Receipt Date: 20210506
  Transmission Date: 20210717
  Serious: Yes (Disabling, Other)
  Sender: FDA-Public Use
  Company Number: US-SA-2020SA287878

PATIENT

DRUGS (4)
  1. TAZAC [Concomitant]
  2. ZANTAC [Suspect]
     Active Substance: RANITIDINE HYDROCHLORIDE
  3. PEPCID [Concomitant]
     Active Substance: FAMOTIDINE
  4. TAGAMET [Concomitant]
     Active Substance: CIMETIDINE

REACTIONS (4)
  - Impaired quality of life [Unknown]
  - Pain [Unknown]
  - Economic problem [Unknown]
  - Neoplasm malignant [Unknown]
